FAERS Safety Report 9552244 (Version 1)
Quarter: 2013Q3

REPORT INFORMATION
  Report Type: Spontaneous
  Country: MY (occurrence: MY)
  Receive Date: 20130925
  Receipt Date: 20130925
  Transmission Date: 20140515
  Serious: Yes (Other)
  Sender: FDA-Public Use
  Company Number: PHHY2013MY104683

PATIENT
  Sex: Female

DRUGS (4)
  1. WARFARIN [Suspect]
     Indication: ANTICOAGULANT THERAPY
     Dosage: 2.5-3 MG
  2. HEPARIN [Suspect]
     Indication: ANTICOAGULANT THERAPY
     Dosage: 16000 U, BID
  3. ENOXAPARIN SANOFI-AVENTIS [Suspect]
     Indication: ANTICOAGULANT THERAPY
     Dosage: 60 MG, BID
     Dates: start: 2007
  4. ENOXAPARIN SANOFI-AVENTIS [Suspect]
     Dosage: 100 MG, BID

REACTIONS (4)
  - Abortion threatened [Unknown]
  - Subchorionic haematoma [Unknown]
  - Normal newborn [Unknown]
  - Maternal exposure during pregnancy [Unknown]
